FAERS Safety Report 9249863 (Version 1)
Quarter: 2013Q2

REPORT INFORMATION
  Report Type: Spontaneous
  Country: US (occurrence: US)
  Receive Date: 20130423
  Receipt Date: 20130423
  Transmission Date: 20140414
  Serious: Yes (Hospitalization)
  Sender: FDA-Public Use
  Company Number: PHHY2013US036259

PATIENT
  Age: 4 Year
  Sex: Female

DRUGS (5)
  1. VALPROIC ACID [Suspect]
     Dosage: 60 MG/KG PER DAY
  2. LACOSAMIDE [Interacting]
     Dosage: 25 MG, BID (3.8 MG/KG/DAY)
  3. LACOSAMIDE [Interacting]
     Dosage: 50 MG, BID (7.7 MG/KG/DAY)
  4. LACOSAMIDE [Interacting]
     Dosage: 25 MG, BID
  5. OXCARBAZEPINE [Concomitant]
     Dosage: 45 MG/KG PER DAY

REACTIONS (17)
  - Toxicity to various agents [Recovered/Resolved]
  - Drug interaction [Recovered/Resolved]
  - Encephalopathy [Recovered/Resolved]
  - Bone marrow failure [Recovered/Resolved]
  - Dizziness [Recovered/Resolved]
  - Feeling abnormal [Recovered/Resolved]
  - Decreased appetite [Recovered/Resolved]
  - Gait disturbance [Recovered/Resolved]
  - Somnolence [Recovered/Resolved]
  - Hypertonia [Recovered/Resolved]
  - Reflexes abnormal [Recovered/Resolved]
  - Extensor plantar response [Recovered/Resolved]
  - Clonus [Recovered/Resolved]
  - Convulsion [Recovered/Resolved]
  - Leukopenia [Recovered/Resolved]
  - Thrombocytopenia [Recovered/Resolved]
  - Anticonvulsant drug level above therapeutic [Unknown]
